FAERS Safety Report 9568973 (Version 1)
Quarter: 2013Q3

REPORT INFORMATION
  Report Type: Spontaneous
  Country: US (occurrence: US)
  Receive Date: 20130930
  Receipt Date: 20130930
  Transmission Date: 20140515
  Serious: No
  Sender: FDA-Public Use
  Company Number: US-AMGEN-USASP2013059654

PATIENT
  Age: 59 Year
  Sex: Male
  Weight: 92.97 kg

DRUGS (13)
  1. ENBREL [Suspect]
     Indication: PRODUCT USED FOR UNKNOWN INDICATION
     Dosage: 50 MG, QWK
     Route: 058
     Dates: start: 20130510
  2. ICAPS                              /07499601/ [Concomitant]
     Dosage: UNK
  3. PRAVASTATIN [Concomitant]
     Dosage: 10 MG, UNK
  4. LISINOPRIL [Concomitant]
     Dosage: 10 MG, UNK
  5. OMEPRAZOLE [Concomitant]
     Dosage: 20 MG, UNK
  6. METFORMIN [Concomitant]
     Dosage: 1000 MG, UNK
  7. GLYBURIDE [Concomitant]
     Dosage: 1.25 MG, UNK
  8. HYDROCHLOROTH [Concomitant]
     Dosage: 12.5 MG, UNK
  9. LABETALOL [Concomitant]
     Dosage: 100 MG, UNK
  10. ASPIRIN [Concomitant]
     Dosage: 81 MG, UNK
  11. GLUCOSAMINE [Concomitant]
     Dosage: 1000 MG, UNK
  12. MULTIVITAMINS, PLAIN [Concomitant]
     Dosage: UNK
  13. OMEGA 3                            /01333901/ [Concomitant]
     Dosage: 1000 MG, UNK

REACTIONS (2)
  - Epistaxis [Unknown]
  - Psoriasis [Unknown]
